FAERS Safety Report 7825550-7 (Version None)
Quarter: 2011Q4

REPORT INFORMATION
  Report Type: 
  Country: None (occurrence: None)
  Receive Date: 20111019
  Receipt Date: 20111012
  Transmission Date: 20120403
  Serious: Yes (Hospitalization)
  Sender: FDA-Public Use
  Company Number: US-ABBOTT-11P-163-0863654-00

PATIENT
  Sex: Female
  Weight: 65.376 kg

DRUGS (13)
  1. RANITIDINE [Concomitant]
     Indication: GASTRIC DISORDER
  2. ACTOS [Concomitant]
     Indication: DIABETES MELLITUS
  3. CIPROFLOXACIN [Suspect]
     Indication: URINARY TRACT INFECTION
     Dates: start: 20110822, end: 20110823
  4. METHOTREXATE [Concomitant]
     Indication: RHEUMATOID ARTHRITIS
  5. JANUVIA [Concomitant]
     Indication: DIABETES MELLITUS
  6. IMITREX [Concomitant]
     Indication: MIGRAINE
  7. ZYRTEC [Concomitant]
     Indication: HYPERSENSITIVITY
  8. HUMIRA [Suspect]
     Indication: RHEUMATOID ARTHRITIS
     Dates: start: 20110301
  9. PREDNISONE [Concomitant]
     Indication: RHEUMATOID ARTHRITIS
  10. PRAVACHOL [Concomitant]
     Indication: BLOOD CHOLESTEROL INCREASED
  11. AMOXICILLIN [Concomitant]
     Indication: URINARY TRACT INFECTION
  12. AVAPRO [Concomitant]
     Indication: HYPERTENSION
  13. VICODIN [Concomitant]
     Indication: PAIN

REACTIONS (13)
  - NEURALGIA [None]
  - PAIN [None]
  - FALL [None]
  - AMNESIA [None]
  - KIDNEY INFECTION [None]
  - VOMITING [None]
  - PNEUMONIA [None]
  - BACTERIAL SEPSIS [None]
  - WEIGHT DECREASED [None]
  - HYPOTENSION [None]
  - BLOOD POTASSIUM DECREASED [None]
  - URINARY TRACT INFECTION [None]
  - FIBROMYALGIA [None]
